FAERS Safety Report 6373635-7 (Version None)
Quarter: 2009Q3

REPORT INFORMATION
  Report Type: 
  Country: None (occurrence: None)
  Receive Date: 20090924
  Receipt Date: 20090911
  Transmission Date: 20100115
  Serious: Yes (Other)
  Sender: FDA-Public Use
  Company Number: US-PFIZER INC-2008028019

PATIENT
  Sex: Male
  Weight: 65.76 kg

DRUGS (10)
  1. XALATAN [Suspect]
     Indication: GLAUCOMA
     Dosage: 1 GTT, 1X/DAY
     Dates: start: 20090301
  2. MULTI-VITAMINS [Concomitant]
     Dosage: UNK
     Route: 048
  3. ASCORBIC ACID [Concomitant]
     Dosage: UNK
     Route: 048
  4. LORATADINE [Concomitant]
     Dosage: UNK
     Route: 048
  5. MONTELUKAST SODIUM [Concomitant]
     Dosage: UNK
     Route: 048
  6. FISH OIL [Concomitant]
     Dosage: UNK
     Route: 048
  7. VITAMIN A [Concomitant]
     Dosage: UNK
  8. VITAMIN B-12 [Concomitant]
     Dosage: UNK
  9. VITAMIN E [Concomitant]
     Dosage: UNK
  10. VITAMIN D [Concomitant]
     Dosage: UNK

REACTIONS (20)
  - ABNORMAL DREAMS [None]
  - BALANCE DISORDER [None]
  - BLOOD PRESSURE FLUCTUATION [None]
  - CONJUNCTIVAL OEDEMA [None]
  - COUGH [None]
  - DIZZINESS [None]
  - DRUG INEFFECTIVE [None]
  - EYE IRRITATION [None]
  - EYE PRURITUS [None]
  - FALL [None]
  - FOREIGN BODY SENSATION IN EYES [None]
  - INCORRECT DOSE ADMINISTERED [None]
  - INTRAOCULAR PRESSURE INCREASED [None]
  - MACULAR OEDEMA [None]
  - MEDICATION ERROR [None]
  - NAUSEA [None]
  - OCULAR HYPERAEMIA [None]
  - RETINAL TEAR [None]
  - VISION BLURRED [None]
  - VISUAL ACUITY REDUCED [None]
